FAERS Safety Report 8458725-7 (Version None)
Quarter: 2012Q2

REPORT INFORMATION
  Report Type: 
  Country: None (occurrence: None)
  Receive Date: 20120615
  Receipt Date: 20120531
  Transmission Date: 20120825
  Serious: Yes (Other)
  Sender: FDA-Public Use
  Company Number: 1306554

PATIENT
  Age: 52 Year
  Sex: Female

DRUGS (2)
  1. IRINOTECAN HCL [Suspect]
     Indication: GLIOBLASTOMA
     Dosage: 203 MG, AS SINGLE DOSE INTRAVENOUS DRIP
     Route: 041
     Dates: start: 20120418, end: 20120418
  2. AVASTIN [Suspect]
     Indication: GLIOBLASTOMA

REACTIONS (5)
  - PALLOR [None]
  - RESPIRATORY DISTRESS [None]
  - ERYTHEMA [None]
  - HYPERHIDROSIS [None]
  - INFUSION RELATED REACTION [None]
